FAERS Safety Report 8665894 (Version 2)
Quarter: 2012Q4

REPORT INFORMATION
  Report Type: 
  Country: PT (occurrence: PT)
  Receive Date: 20120716
  Receipt Date: 20120925
  Transmission Date: 20130627
  Serious: Yes (Life-Threatening)
  Sender: FDA-Public Use
  Company Number: PT-OPTIMER-20120095

PATIENT
  Age: 56 Year
  Sex: Male

DRUGS (14)
  1. DIFICLIR [Suspect]
     Indication: CLOSTRIDIAL INFECTION
     Dosage: 200 mg, bid
     Route: 048
     Dates: start: 20120626, end: 20120630
  2. NIFEDIPINA [Concomitant]
     Dosage: 30 mg, breakfast
     Route: 048
     Dates: start: 20120628
  3. AMLODIPINA [Concomitant]
     Dosage: 5 mg, breakfast
     Route: 048
     Dates: start: 20120622
  4. AMLODIPINA [Concomitant]
     Dosage: 5 mg prn, BP over 170/100
     Route: 048
     Dates: start: 20120622
  5. CARVEDILOL [Concomitant]
     Dosage: 6.25 mg, bid
     Route: 048
     Dates: start: 20120622
  6. ALPRAZOLAM [Concomitant]
     Dosage: 0.25 mg, evening
     Route: 048
     Dates: start: 20120622
  7. NPH INSULIN [Concomitant]
     Dosage: 14 UI, breakfast
     Route: 058
     Dates: start: 20120628
  8. NPH INSULIN [Concomitant]
     Dosage: 10 UI, evening
     Route: 058
     Dates: start: 20120628
  9. PARACETAMOL [Concomitant]
     Indication: PYREXIA
     Dosage: 1000 mg, prn
     Route: 042
     Dates: start: 20120622
  10. PARACETAMOL [Concomitant]
     Indication: PAIN
  11. INSULIN [Concomitant]
     Dosage: sliding scale, prn
     Route: 058
     Dates: start: 20120622
  12. GLUCOSE [Concomitant]
     Dosage: 40 ml, prn glucose under 80
     Route: 042
     Dates: start: 20120622
  13. B COMPLEX [Concomitant]
     Dosage: ^1-comp^, lunch
     Route: 048
     Dates: start: 20120622
  14. ACIDO FOLICO [Concomitant]
     Dosage: 5 mg, lunch
     Route: 048
     Dates: start: 20120622

REACTIONS (2)
  - Angioedema [Recovered/Resolved]
  - Dyspnoea [Recovered/Resolved]
